FAERS Safety Report 6580126-7 (Version None)
Quarter: 2010Q1

REPORT INFORMATION
  Report Type: 
  Country: None (occurrence: None)
  Receive Date: 20100212
  Receipt Date: 20090715
  Transmission Date: 20100710
  Serious: Yes (Death, Hospitalization)
  Sender: FDA-Public Use
  Company Number: US-PFIZER INC-2009160272

PATIENT
  Sex: Female
  Weight: 68.481 kg

DRUGS (14)
  1. IRINOTECAN HCL [Suspect]
     Indication: RECTAL CANCER
     Dosage: 322 MG, EVERY 2 WEEKS
     Route: 042
     Dates: start: 20081201, end: 20081222
  2. IRINOTECAN HCL [Suspect]
     Dosage: 204 MG,EVERY 2 WEEKS
     Route: 042
     Dates: start: 20090119, end: 20090119
  3. FLUOROURACIL [Suspect]
     Indication: RECTAL CANCER
     Dosage: 716 MG, EVERY 2 WEEKS
     Route: 040
     Dates: start: 20081201, end: 20090119
  4. FLUOROURACIL [Suspect]
     Dosage: 4296 MG, EVERY 2 WEEKS
     Route: 041
     Dates: start: 20081201, end: 20091221
  5. *CALCIUM FOLINATE [Suspect]
     Indication: RECTAL CANCER
     Dosage: 716 MG, EVERY 2 WEEKS
     Route: 042
     Dates: start: 20081201, end: 20090119
  6. AXITINIB [Suspect]
     Indication: RECTAL CANCER
     Dosage: 5 MG, 2X/DAY
     Route: 048
     Dates: start: 20081201, end: 20090120
  7. NORTRIPTYLINE [Concomitant]
     Dosage: UNK
     Route: 048
     Dates: start: 19950101
  8. LORTAB [Concomitant]
     Dosage: UNK
     Route: 048
     Dates: start: 20071120
  9. VITAMIN E [Concomitant]
     Dosage: UNK
     Route: 048
     Dates: start: 20080609
  10. XANAX [Concomitant]
     Dosage: UNK
     Route: 048
     Dates: start: 20080501
  11. SOMA [Concomitant]
     Dosage: UNK
     Route: 048
     Dates: start: 20080922
  12. LOMOTIL [Concomitant]
     Dosage: UNK
     Route: 048
     Dates: start: 20051101
  13. PROTONIX [Concomitant]
     Dosage: UNK
     Route: 048
     Dates: start: 20011201
  14. ZIAC [Concomitant]
     Dosage: UNK
     Route: 048
     Dates: start: 20081205

REACTIONS (3)
  - NAUSEA [None]
  - SEPSIS [None]
  - VOMITING [None]
